FAERS Safety Report 7542463-9 (Version None)
Quarter: 2011Q2

REPORT INFORMATION
  Report Type: 
  Country: None (occurrence: None)
  Receive Date: 20110524
  Receipt Date: 20110202
  Transmission Date: 20111010
  Serious: No
  Sender: FDA-Public Use
  Company Number: 025675

PATIENT
  Sex: Female

DRUGS (1)
  1. CIMZIA [Suspect]
     Indication: CROHN'S DISEASE
     Dosage: SUBCUTANEOUS
     Route: 058
     Dates: start: 20110113, end: 20110113

REACTIONS (5)
  - PALPITATIONS [None]
  - HAEMORRHAGE [None]
  - NAUSEA [None]
  - MALAISE [None]
  - DIZZINESS [None]
